FAERS Safety Report 11687246 (Version 1)
Quarter: 2015Q4

REPORT INFORMATION
  Report Type: Spontaneous
  Country: RO (occurrence: RO)
  Receive Date: 20151030
  Receipt Date: 20151030
  Transmission Date: 20160304
  Serious: Yes (Hospitalization)
  Sender: FDA-Public Use
  Company Number: PHHY2015RO139059

PATIENT
  Age: 5 Month

DRUGS (1)
  1. GENTAMICIN. [Suspect]
     Active Substance: GENTAMICIN
     Indication: PNEUMONIA
     Route: 065

REACTIONS (1)
  - Renal tubular necrosis [Recovered/Resolved]
